FAERS Safety Report 7801843-4 (Version None)
Quarter: 2011Q4

REPORT INFORMATION
  Report Type: 
  Country: None (occurrence: None)
  Receive Date: 20111007
  Receipt Date: 20110930
  Transmission Date: 20120403
  Serious: Yes (Hospitalization, Disabling)
  Sender: FDA-Public Use
  Company Number: US-PFIZER INC-2006011169

PATIENT
  Sex: Male
  Weight: 95 kg

DRUGS (7)
  1. ASPIRIN [Concomitant]
     Route: 048
     Dates: start: 20050901
  2. NORVASC [Concomitant]
     Route: 048
     Dates: start: 19850101
  3. SUNITINIB MALATE [Suspect]
     Indication: GASTROINTESTINAL STROMAL TUMOUR
     Dosage: 50 MG, 1X/DAY
     Route: 048
     Dates: start: 20060106, end: 20060222
  4. LIPITOR [Concomitant]
     Route: 048
     Dates: start: 20050901
  5. NITROGLYCERIN [Concomitant]
     Route: 048
     Dates: start: 20050901
  6. ATENOLOL [Concomitant]
     Route: 048
     Dates: start: 19850101
  7. HYTRIN [Concomitant]
     Route: 048
     Dates: start: 19850101

REACTIONS (7)
  - PYREXIA [None]
  - NEUTROPENIA [None]
  - GUILLAIN-BARRE SYNDROME [None]
  - THROMBOCYTOPENIA [None]
  - INFECTION [None]
  - PALMAR-PLANTAR ERYTHRODYSAESTHESIA SYNDROME [None]
  - LEUKOPENIA [None]
